FAERS Safety Report 7021398-4 (Version None)
Quarter: 2010Q3

REPORT INFORMATION
  Report Type: 
  Country: None (occurrence: None)
  Receive Date: 20100929
  Receipt Date: 20100920
  Transmission Date: 20110219
  Serious: Yes (Hospitalization)
  Sender: FDA-Public Use
  Company Number: US-PFIZER INC-2010119991

PATIENT
  Sex: Female
  Weight: 131.52 kg

DRUGS (10)
  1. CHANTIX [Suspect]
     Indication: SMOKING CESSATION THERAPY
     Dosage: 0.5 MG, 1X/DAY
     Route: 048
     Dates: start: 20071116, end: 20071207
  2. CYMBALTA [Concomitant]
     Indication: DEPRESSION
     Dosage: UNK
  3. LAMICTAL [Concomitant]
     Indication: AFFECTIVE DISORDER
     Dosage: 200 MG, UNK
  4. LANTUS [Concomitant]
     Indication: DIABETES MELLITUS
     Dosage: 85 UNITS, DAILY
     Dates: start: 20050201
  5. SITAGLIPTIN [Concomitant]
     Indication: DIABETES MELLITUS
     Dosage: 100 MG, DAILY
  6. GLYBURIDE [Concomitant]
     Indication: DIABETES MELLITUS
     Dosage: 5 MG, DAILY
  7. RELAFEN [Concomitant]
     Indication: ARTHRITIS
     Dosage: 750 MG, 2X/DAY
  8. TRAZODONE [Concomitant]
     Dosage: 100 MG, UNK
  9. ATIVAN [Concomitant]
     Dosage: UNK
  10. AVAPRO [Concomitant]
     Indication: HYPERTENSION
     Dosage: 150 MG, UNK

REACTIONS (3)
  - ERYTHEMA [None]
  - OEDEMA PERIPHERAL [None]
  - TOBACCO USER [None]
